FAERS Safety Report 21362203 (Version 5)
Quarter: 2022Q4

REPORT INFORMATION
  Report Type: Report from Study
  Country: US (occurrence: US)
  Receive Date: 20220922
  Receipt Date: 20221129
  Transmission Date: 20230112
  Serious: Yes (Hospitalization, Other)
  Sender: FDA-Public Use
  Company Number: US-ABBVIE-22K-163-4364743-00

PATIENT
  Age: 69 Year
  Sex: Female

DRUGS (3)
  1. HUMIRA [Suspect]
     Active Substance: ADALIMUMAB
     Indication: Rheumatoid arthritis
     Dosage: CITRATE FREE
     Route: 058
  2. HUMIRA [Suspect]
     Active Substance: ADALIMUMAB
     Dosage: CITRATE FREE
     Route: 058
  3. HUMIRA [Suspect]
     Active Substance: ADALIMUMAB
     Dosage: CITRATE FREE?(CREATE TO UPDATE LOT)
     Route: 058

REACTIONS (16)
  - Knee arthroplasty [Unknown]
  - Hip surgery [Unknown]
  - Cataract [Unknown]
  - Peripheral swelling [Unknown]
  - Tooth fracture [Unknown]
  - Arthritis [Unknown]
  - COVID-19 [Recovered/Resolved]
  - Clostridium difficile infection [Unknown]
  - Oral surgery [Unknown]
  - White blood cell count increased [Unknown]
  - Nasopharyngitis [Unknown]
  - Erythema [Unknown]
  - Pain [Unknown]
  - Limb injury [Unknown]
  - Pleural effusion [Unknown]
  - Feeling hot [Unknown]

NARRATIVE: CASE EVENT DATE: 20220501
